FAERS Safety Report 15730868 (Version 1)
Quarter: 2018Q4

REPORT INFORMATION
  Report Type: Spontaneous
  Country: PT (occurrence: PT)
  Receive Date: 20181217
  Receipt Date: 20181217
  Transmission Date: 20190205
  Serious: Yes (Other)
  Sender: FDA-Public Use
  Company Number: PT-TEVA-2018-PT-987433

PATIENT
  Age: 53 Year
  Sex: Male

DRUGS (2)
  1. IBUPROFEN. [Suspect]
     Active Substance: IBUPROFEN
     Route: 048
     Dates: start: 201701, end: 201701
  2. MAXILASE [Suspect]
     Active Substance: PANCRELIPASE
     Route: 048
     Dates: start: 201701, end: 201701

REACTIONS (1)
  - Tongue oedema [Recovered/Resolved]
